FAERS Safety Report 9713912 (Version 1)
Quarter: 2013Q4

REPORT INFORMATION
  Report Type: Spontaneous
  Country: US (occurrence: None)
  Receive Date: 20131126
  Receipt Date: 20131126
  Transmission Date: 20140711
  Serious: Yes (Disabling)
  Sender: FDA-Public Use
  Company Number: None

PATIENT
  Age: 31 Year
  Sex: Female
  Weight: 71.22 kg

DRUGS (1)
  1. VICTOZA [Suspect]
     Indication: TYPE 2 DIABETES MELLITUS
     Dosage: 1.2 MG ONCE DAILY INTO THE MUSCLE
     Route: 030
     Dates: start: 20131112

REACTIONS (4)
  - Mania [None]
  - Fear [None]
  - Product quality issue [None]
  - Abdominal discomfort [None]
